FAERS Safety Report 8069473-X (Version None)
Quarter: 2012Q1

REPORT INFORMATION
  Report Type: 
  Country: None (occurrence: None)
  Receive Date: 20120125
  Receipt Date: 20120124
  Transmission Date: 20120608
  Serious: Yes (Other)
  Sender: FDA-Public Use
  Company Number: MX-JNJFOC-20120102448

PATIENT
  Age: 2 Year
  Sex: Female
  Weight: 12 kg

DRUGS (6)
  1. ACETAMINOPHEN [Suspect]
     Indication: PHARYNGITIS
     Dosage: 24 DROPS= 1.2 ML, CONCENTRATION WAS NOT SPECIFIED.
     Route: 048
     Dates: start: 20120102, end: 20120103
  2. CHILDREN'S MOTRIN [Suspect]
     Indication: PHARYNGITIS
     Dosage: 20MG/ML; DOSE UNKNOWN
     Route: 048
     Dates: start: 20111202, end: 20111231
  3. CHILDREN'S MOTRIN [Suspect]
     Indication: PYREXIA
     Dosage: 20MG/ML; DOSE UNKNOWN
     Route: 048
     Dates: start: 20111202, end: 20111231
  4. CONCENTRATED MOTRIN INFANTS DROPS [Suspect]
     Indication: PHARYNGITIS
     Dosage: 40MG/ML (CONCENTRATED)
     Route: 048
     Dates: start: 20111201, end: 20111207
  5. ACETAMINOPHEN [Suspect]
     Indication: PYREXIA
     Dosage: 24 DROPS= 1.2 ML, CONCENTRATION WAS NOT SPECIFIED.
     Route: 048
     Dates: start: 20120102, end: 20120103
  6. CONCENTRATED MOTRIN INFANTS DROPS [Suspect]
     Indication: PYREXIA
     Dosage: 40MG/ML (CONCENTRATED)
     Route: 048
     Dates: start: 20111201, end: 20111207

REACTIONS (9)
  - APPETITE DISORDER [None]
  - COUGH [None]
  - VOMITING [None]
  - OVERDOSE [None]
  - ASTHMA [None]
  - URINE OUTPUT DECREASED [None]
  - RELAPSING FEVER [None]
  - HYPOTHERMIA [None]
  - WRONG DRUG ADMINISTERED [None]
